FAERS Safety Report 5746650-1 (Version None)
Quarter: 2008Q2

REPORT INFORMATION
  Report Type: 
  Country: None (occurrence: None)
  Receive Date: 20080522
  Receipt Date: 20080514
  Transmission Date: 20081010
  Serious: Yes (Death, Other)
  Sender: FDA-Public Use
  Company Number: PHHY2008JP08015

PATIENT
  Sex: Male

DRUGS (7)
  1. CYCLOSPORINE [Suspect]
     Indication: BONE MARROW TRANSPLANT
     Dosage: 3 MG/KG/DAY
     Dates: start: 19980414
  2. CYCLOPHOSPHAMIDE [Concomitant]
     Indication: BONE MARROW TRANSPLANT
     Dosage: 50 MG/KG/DAY
  3. ANTITHYMOCYTE IMMUNOGLOBULIN [Concomitant]
     Indication: BONE MARROW TRANSPLANT
     Dosage: 2.5 MG/KG/DAY
  4. METHOTREXATE [Concomitant]
     Indication: BONE MARROW TRANSPLANT
     Dosage: 15 MG/DAY
     Dates: start: 19980416
  5. METHOTREXATE [Concomitant]
     Dosage: 10 MG/DAY
  6. PREDNISOLONE [Concomitant]
     Indication: BONE MARROW TRANSPLANT
     Dosage: 1 MG/KG/DAY
     Dates: start: 19980422
  7. IRRADIATION [Concomitant]
     Dosage: 10 GY, 5 FRACTIONS

REACTIONS (16)
  - APHASIA [None]
  - CSF VIRUS IDENTIFIED [None]
  - DEPRESSED LEVEL OF CONSCIOUSNESS [None]
  - DYSARTHRIA [None]
  - EPSTEIN-BARR VIRUS INFECTION [None]
  - EYE MOVEMENT DISORDER [None]
  - GRAFT VERSUS HOST DISEASE [None]
  - HEADACHE [None]
  - HERPES SIMPLEX [None]
  - JC VIRUS INFECTION [None]
  - LYMPHOPROLIFERATIVE DISORDER [None]
  - NAUSEA [None]
  - PNEUMONIA FUNGAL [None]
  - PROGRESSIVE MULTIFOCAL LEUKOENCEPHALOPATHY [None]
  - RESPIRATION ABNORMAL [None]
  - STAPHYLOCOCCAL SEPSIS [None]
